FAERS Safety Report 4898997-9 (Version None)
Quarter: 2006Q1

REPORT INFORMATION
  Report Type: 
  Country: None (occurrence: None)
  Receive Date: 20060202
  Receipt Date: 20060130
  Transmission Date: 20060701
  Serious: Yes (Hospitalization)
  Sender: FDA-Public Use
  Company Number: US-MERCK-0601USA03532

PATIENT
  Age: 80 Year
  Sex: Male

DRUGS (3)
  1. FOSAMAX [Suspect]
     Indication: BONE DISORDER
     Route: 048
     Dates: start: 20030101
  2. [THERAPY UNSPECIFIED] [Concomitant]
     Indication: THYROID DISORDER
     Route: 065
  3. VIOXX [Concomitant]
     Route: 048

REACTIONS (3)
  - DIFFICULTY IN WALKING [None]
  - DYSPHAGIA [None]
  - SPEECH DISORDER [None]
